FAERS Safety Report 17087662 (Version 1)
Quarter: 2019Q4

REPORT INFORMATION
  Report Type: Spontaneous
  Country: SE (occurrence: SE)
  Receive Date: 20191128
  Receipt Date: 20191128
  Transmission Date: 20200122
  Serious: Yes (Other)
  Sender: FDA-Public Use
  Company Number: SE-ALK-ABELLO A/S-2019AA004005

PATIENT

DRUGS (10)
  1. PROPYDERM                          /00222401/ [Concomitant]
  2. GRAZAX [Suspect]
     Active Substance: PHLEUM PRATENSE POLLEN
     Indication: CONJUNCTIVITIS ALLERGIC
     Dosage: 75000 SQ-T, QD
     Route: 060
     Dates: start: 201512, end: 201910
  3. AERIUS (DESLORATADINE) [Concomitant]
     Active Substance: DESLORATADINE
     Dosage: 5 MILLIGRAM
  4. BUDESONIDE. [Concomitant]
     Active Substance: BUDESONIDE
     Dosage: UNK UNK, PRN
  5. BUVENTOL                           /00139502/ [Concomitant]
     Dosage: UNK UNK, PRN
  6. MOMETASONE FUROATE. [Concomitant]
     Active Substance: MOMETASONE FUROATE
     Dosage: UNK UNK, PRN
  7. MOMETASONE [Concomitant]
     Active Substance: MOMETASONE
     Dosage: UNK UNK, PRN
     Route: 055
  8. ALUTARD SQ BJ?RK [Suspect]
     Active Substance: ALLERGENIC EXTRACTS
     Indication: CONJUNCTIVITIS ALLERGIC
     Dosage: 100000 SQ/ML, 1 TIME PR 8 WEEKS
     Route: 058
     Dates: start: 201710, end: 201910
  9. PROTOPIC [Concomitant]
     Active Substance: TACROLIMUS
  10. MILDISON [Concomitant]
     Active Substance: HYDROCORTISONE

REACTIONS (1)
  - Colitis ulcerative [Not Recovered/Not Resolved]

NARRATIVE: CASE EVENT DATE: 201908
